FAERS Safety Report 5096491-6 (Version None)
Quarter: 2006Q3

REPORT INFORMATION
  Report Type: 
  Country: None (occurrence: None)
  Receive Date: 20060830
  Receipt Date: 20060821
  Transmission Date: 20061208
  Serious: Yes (Death, Hospitalization)
  Sender: FDA-Public Use
  Company Number: 228957

PATIENT
  Age: 65 Year
  Sex: Female
  Weight: 33 kg

DRUGS (6)
  1. MABTHERA(RITUXIMAB) CONC FOR SOLUTION FOR INFUSION [Suspect]
     Indication: DRUG USE FOR UNKNOWN INDICATION
     Dosage: 670 MG INTRAVENOUS
     Route: 042
     Dates: start: 20060531, end: 20060609
  2. METHYLPREDNISONE (UNK INGREDIENTS) [Suspect]
     Indication: DRUG USE FOR UNKNOWN INDICATION
     Dosage: 70 MG INTRAVENOUS
     Route: 042
     Dates: start: 20060531, end: 20060609
  3. DOXORUBICIN HCL [Suspect]
     Indication: DRUG USE FOR UNKNOWN INDICATION
     Dosage: 90 MG INTRAVENOUS
     Route: 042
     Dates: start: 20060531, end: 20060809
  4. CYCLOPHOSPHAMIDE [Suspect]
     Indication: DRUG USE FOR UNKNOWN INDICATION
     Dosage: 1350 MG INTRAVENOUS
     Route: 042
     Dates: start: 20060531, end: 20060809
  5. VINCRISTINE [Suspect]
     Indication: DRUG USE FOR UNKNOWN INDICATION
     Dosage: 2 MG INTRAVENOUS
     Route: 042
     Dates: start: 20060531, end: 20060809
  6. PREDNISONE TAB [Suspect]
     Indication: DRUG USE FOR UNKNOWN INDICATION
     Dosage: 70 MG ORAL
     Route: 048
     Dates: start: 20060601, end: 20060809

REACTIONS (2)
  - DYSPNOEA [None]
  - SEPSIS [None]
